FAERS Safety Report 14370873 (Version 1)
Quarter: 2018Q1

REPORT INFORMATION
  Report Type: Spontaneous
  Country: US (occurrence: US)
  Receive Date: 20180109
  Receipt Date: 20180109
  Transmission Date: 20180509
  Serious: Yes (Other)
  Sender: FDA-Public Use
  Company Number: None

PATIENT
  Age: 27 Year
  Sex: Female
  Weight: 114.76 kg

DRUGS (1)
  1. SUBOXONE [Suspect]
     Active Substance: BUPRENORPHINE HYDROCHLORIDE\NALOXONE HYDROCHLORIDE
     Indication: DRUG DEPENDENCE
     Dosage: 8-2 MG ALM 2 ALMS SUBLINGUAL
     Route: 060
     Dates: start: 20180108

REACTIONS (4)
  - Nausea [None]
  - Fatigue [None]
  - Retching [None]
  - Vomiting [None]

NARRATIVE: CASE EVENT DATE: 20180108
